FAERS Safety Report 5949316-8 (Version None)
Quarter: 2008Q4

REPORT INFORMATION
  Report Type: 
  Country: None (occurrence: None)
  Receive Date: 20081021
  Receipt Date: 20070917
  Transmission Date: 20090506
  Serious: No
  Sender: FDA-Public Use
  Company Number: HQWYE169623JUL07

PATIENT
  Age: 86 Year
  Sex: Female

DRUGS (9)
  1. PREMARIN [Suspect]
     Indication: HORMONE REPLACEMENT THERAPY
     Dosage: CYCLICALLY;1 TAB/0.9MG QD FOR 21 DAYS; OFF 7 DAYS, ORAL
     Route: 048
  2. LOPRESSOR [Concomitant]
  3. TRENTAL [Concomitant]
  4. AMARYL (GLMIEPIRIDE) [Concomitant]
  5. NEURONTIN [Concomitant]
  6. METFORMIN HCL [Concomitant]
  7. PROCARDIA XL [Concomitant]
  8. CLEOCIN (CLINDAMYCIN HYDROCHLORIDE) [Concomitant]
  9. VICODIN [Concomitant]

REACTIONS (2)
  - DRUG INEFFECTIVE [None]
  - PRODUCT QUALITY ISSUE [None]
